FAERS Safety Report 23345132 (Version 1)
Quarter: 2023Q4

REPORT INFORMATION
  Report Type: Spontaneous
  Country: FR (occurrence: FR)
  Receive Date: 20231228
  Receipt Date: 20231228
  Transmission Date: 20240110
  Serious: Yes (Hospitalization)
  Sender: FDA-Public Use
  Company Number: None

PATIENT
  Age: 72 Year
  Sex: Female

DRUGS (14)
  1. BACTRIM [Suspect]
     Active Substance: SULFAMETHOXAZOLE\TRIMETHOPRIM
     Indication: Antiviral prophylaxis
     Dosage: 1.000DF QD
     Route: 048
     Dates: start: 20230531, end: 20230810
  2. PANTOPRAZOLE [Suspect]
     Active Substance: PANTOPRAZOLE
     Indication: Dyspepsia
     Dosage: 40.000MG QD
     Route: 048
     Dates: start: 2017, end: 20230810
  3. RITUXIMAB [Suspect]
     Active Substance: RITUXIMAB
     Indication: Acquired haemophilia
     Dosage: 600.000MG
     Route: 042
     Dates: start: 20230607, end: 20230607
  4. RITUXIMAB [Suspect]
     Active Substance: RITUXIMAB
     Dosage: 600.000MG
     Route: 042
     Dates: start: 20230531, end: 20230531
  5. RITUXIMAB [Suspect]
     Active Substance: RITUXIMAB
     Dosage: 600.000MG
     Route: 042
     Dates: start: 20230615, end: 20230615
  6. RITUXIMAB [Suspect]
     Active Substance: RITUXIMAB
     Dosage: 600.000MG
     Route: 042
     Dates: start: 20230623, end: 20230623
  7. VALACYCLOVIR HYDROCHLORIDE [Suspect]
     Active Substance: VALACYCLOVIR HYDROCHLORIDE
     Indication: Antiviral prophylaxis
     Dosage: 500.000MG BID
     Route: 048
     Dates: start: 20230624, end: 20230810
  8. ATORVASTATIN [Concomitant]
     Active Substance: ATORVASTATIN
     Indication: Cardiomyopathy
     Dosage: 10.000MG QD
     Route: 065
  9. BISOPROLOL [Concomitant]
     Active Substance: BISOPROLOL\BISOPROLOL FUMARATE
     Indication: Cardiomyopathy
     Dosage: 2.500MG QD
     Route: 065
  10. ACETAMINOPHEN\CODEINE PHOSPHATE [Concomitant]
     Active Substance: ACETAMINOPHEN\CODEINE PHOSPHATE
     Indication: Product used for unknown indication
     Dosage: 1.000DF TID
     Route: 065
  11. POTASSIUM CHLORIDE [Concomitant]
     Active Substance: POTASSIUM CHLORIDE
     Indication: Hypokalaemia
     Dosage: 600.000MG BID
     Route: 065
  12. GABAPENTIN [Concomitant]
     Active Substance: GABAPENTIN
     Indication: Post herpetic neuralgia
     Dosage: 200.000MG TID
     Route: 065
  13. ACETAMINOPHEN [Concomitant]
     Active Substance: ACETAMINOPHEN
     Indication: Pain
     Dosage: 500.000MG QID
     Route: 065
  14. PREDNISONE [Concomitant]
     Active Substance: PREDNISONE
     Indication: Acquired haemophilia
     Dosage: 60.000MG QD
     Route: 065

REACTIONS (2)
  - Agranulocytosis [Recovered/Resolved]
  - Thrombocytopenia [Recovering/Resolving]

NARRATIVE: CASE EVENT DATE: 20230808
